FAERS Safety Report 22312656 (Version 4)
Quarter: 2023Q4

REPORT INFORMATION
  Report Type: Report from Study
  Country: CO (occurrence: CO)
  Receive Date: 20230512
  Receipt Date: 20231019
  Transmission Date: 20240110
  Serious: Yes (Other)
  Sender: FDA-Public Use
  Company Number: CO-BAYER-2023A065304

PATIENT
  Sex: Female

DRUGS (7)
  1. EYLEA [Suspect]
     Active Substance: AFLIBERCEPT
     Indication: Diabetic retinal oedema
     Dosage: UNK, BOTH EYES; SOLUTION FOR INJECTION; STRENGTH: 40 MG/ML
     Dates: start: 20210315, end: 20210315
  2. EYLEA [Suspect]
     Active Substance: AFLIBERCEPT
     Dosage: UNK, BOTH EYES; SOLUTION FOR INJECTION; STRENGTH: 40 MG/ML
     Dates: start: 20210415, end: 20210415
  3. EYLEA [Suspect]
     Active Substance: AFLIBERCEPT
     Dosage: UNK, BOTH EYES; SOLUTION FOR INJECTION; STRENGTH: 40 MG/ML
     Dates: start: 20210521, end: 20210521
  4. EYLEA [Suspect]
     Active Substance: AFLIBERCEPT
     Dosage: UNK, BOTH EYES; SOLUTION FOR INJECTION; STRENGTH: 40 MG/ML
     Dates: start: 20210723, end: 20210723
  5. EYLEA [Suspect]
     Active Substance: AFLIBERCEPT
     Dosage: UNK, BOTH EYES; SOLUTION FOR INJECTION; STRENGTH: 40 MG/ML
     Dates: start: 20210827, end: 20210827
  6. EYLEA [Suspect]
     Active Substance: AFLIBERCEPT
     Dosage: UNK, BOTH EYES; SOLUTION FOR INJECTION; STRENGTH: 40 MG/ML
     Dates: start: 20211021, end: 20211021
  7. EYLEA [Suspect]
     Active Substance: AFLIBERCEPT
     Dosage: UNK, RIGHT EYE; SOLUTION FOR INJECTION; STRENGTH: 40 MG/ML
     Dates: start: 20220422

REACTIONS (6)
  - Blindness [Recovering/Resolving]
  - Cataract operation [Unknown]
  - Inappropriate schedule of product administration [Unknown]
  - Eye irritation [Unknown]
  - Eye laser surgery [Unknown]
  - Pterygium [Unknown]

NARRATIVE: CASE EVENT DATE: 20230401
